FAERS Safety Report 8202265-7 (Version None)
Quarter: 2012Q1

REPORT INFORMATION
  Report Type: 
  Country: None (occurrence: None)
  Receive Date: 20120312
  Receipt Date: 20120306
  Transmission Date: 20120608
  Serious: Yes (Other)
  Sender: FDA-Public Use
  Company Number: ES-BAYER-2012-021652

PATIENT
  Age: 71 Year
  Sex: Male
  Weight: 75 kg

DRUGS (1)
  1. MOXIFLOXACIN [Suspect]
     Indication: BRONCHITIS
     Route: 065
     Dates: start: 20120208, end: 20120209

REACTIONS (1)
  - PENILE SWELLING [None]
